FAERS Safety Report 5962616-0 (Version None)
Quarter: 2008Q4

REPORT INFORMATION
  Report Type: 
  Country: None (occurrence: None)
  Receive Date: 20081121
  Receipt Date: 20081118
  Transmission Date: 20090506
  Serious: Yes (Life-Threatening, Hospitalization)
  Sender: FDA-Public Use
  Company Number: PHEH2008US06822

PATIENT
  Sex: Male
  Weight: 88.4 kg

DRUGS (10)
  1. TASIGNA [Suspect]
     Indication: B-CELL TYPE ACUTE LEUKAEMIA
     Dosage: 400 MG, BID
     Route: 048
     Dates: start: 20080304
  2. VORICONAZOLE [Interacting]
     Indication: PNEUMONIA FUNGAL
     Dosage: 200 MG, BID
     Route: 048
     Dates: start: 20080227
  3. LEVOFLOXACIN [Interacting]
     Dosage: 750 MG, QD
     Dates: start: 20080227
  4. NORVASC [Concomitant]
     Dosage: 5 MG, QD
  5. MORPHINE [Concomitant]
  6. NEUPOGEN [Concomitant]
  7. OXYCODONE HCL [Concomitant]
  8. DOCUSATE [Concomitant]
  9. ACETAMINOPHEN [Concomitant]
  10. TEMAZEPAM [Concomitant]

REACTIONS (4)
  - ABDOMINAL PAIN [None]
  - DIARRHOEA [None]
  - ELECTROCARDIOGRAM QT PROLONGED [None]
  - RASH ERYTHEMATOUS [None]
